FAERS Safety Report 8510429-8 (Version None)
Quarter: 2012Q3

REPORT INFORMATION
  Report Type: 
  Country: None (occurrence: None)
  Receive Date: 20120714
  Receipt Date: 20120709
  Transmission Date: 20120928
  Serious: Yes (Hospitalization, Other)
  Sender: FDA-Public Use
  Company Number: PHHY2012US058758

PATIENT
  Age: 16 Month
  Sex: Male

DRUGS (4)
  1. TACROLIMUS [Suspect]
     Indication: LIVER TRANSPLANT
  2. METHYLPREDNISOLONE ACETATE [Suspect]
     Indication: IMMUNOSUPPRESSION
     Dosage: 20 MG/KG, UNK
  3. DACLIZUMAB [Suspect]
     Indication: IMMUNOSUPPRESSION
  4. MYCOPHENOLATE MEFETIL [Suspect]
     Indication: LIVER TRANSPLANT

REACTIONS (8)
  - TACHYPNOEA [None]
  - LIVER TRANSPLANT REJECTION [None]
  - PYREXIA [None]
  - CYTOMEGALOVIRUS TEST POSITIVE [None]
  - HEPATIC NECROSIS [None]
  - IMMUNOSUPPRESSANT DRUG LEVEL INCREASED [None]
  - ADENOVIRAL HEPATITIS [None]
  - PULMONARY OEDEMA [None]
